FAERS Safety Report 6836508-9 (Version None)
Quarter: 2010Q3

REPORT INFORMATION
  Report Type: 
  Country: None (occurrence: None)
  Receive Date: 20100708
  Receipt Date: 20100624
  Transmission Date: 20110219
  Serious: Yes (Hospitalization)
  Sender: FDA-Public Use
  Company Number: 007331

PATIENT
  Sex: Female
  Weight: 64.9 kg

DRUGS (8)
  1. SAMSCA [Suspect]
     Indication: HYPONATRAEMIA
     Dates: start: 20090803, end: 20090801
  2. SAMSCA [Suspect]
     Indication: HYPONATRAEMIA
     Dates: start: 20100102
  3. COUMADIN [Concomitant]
  4. LASIX [Concomitant]
  5. NITROGLYCERIN TRANSDERMAL SYSTEM (GLYCERYL TRINITRATE) [Concomitant]
  6. TOPROL-XL [Concomitant]
  7. CARDIZEM [Concomitant]
  8. ASPIRIN [Concomitant]

REACTIONS (7)
  - ANGINA PECTORIS [None]
  - ARTERIAL OCCLUSIVE DISEASE [None]
  - BLOOD SODIUM DECREASED [None]
  - CARDIAC FAILURE CONGESTIVE [None]
  - FLUID RETENTION [None]
  - OEDEMA PERIPHERAL [None]
  - OXYGEN SATURATION DECREASED [None]
